FAERS Safety Report 9687910 (Version 1)
Quarter: 2013Q4

REPORT INFORMATION
  Report Type: Spontaneous
  Country: US (occurrence: None)
  Receive Date: 20131113
  Receipt Date: 20131113
  Transmission Date: 20140711
  Serious: Yes (Life-Threatening, Hospitalization)
  Sender: FDA-Public Use
  Company Number: None

PATIENT
  Age: 78 Year
  Sex: Male
  Weight: 69.9 kg

DRUGS (2)
  1. RASBURICASE [Suspect]
     Indication: HYPERURICAEMIA
     Route: 042
     Dates: start: 20131101, end: 20131101
  2. RASBURICASE [Suspect]
     Indication: NEOPLASM MALIGNANT
     Route: 042
     Dates: start: 20131101, end: 20131101

REACTIONS (6)
  - Blood pressure systolic increased [None]
  - Hypoxia [None]
  - Haemolytic anaemia [None]
  - Thrombocytopenia [None]
  - Leukopenia [None]
  - Methaemoglobinaemia [None]
